FAERS Safety Report 16109389 (Version 1)
Quarter: 2019Q1

REPORT INFORMATION
  Report Type: Spontaneous
  Country: US (occurrence: US)
  Receive Date: 20190324
  Receipt Date: 20190324
  Transmission Date: 20190418
  Serious: No
  Sender: FDA-Public Use
  Company Number: US-JNJFOC-20190307851

PATIENT
  Sex: Male
  Weight: 102.06 kg

DRUGS (1)
  1. INVEGA SUSTENNA [Suspect]
     Active Substance: PALIPERIDONE PALMITATE
     Indication: SCHIZOPHRENIA
     Route: 030

REACTIONS (5)
  - Product dose omission [Unknown]
  - Product complaint [Unknown]
  - Product leakage [Unknown]
  - Needle issue [Unknown]
  - Accidental exposure to product [Unknown]
